FAERS Safety Report 11603762 (Version 2)
Quarter: 2016Q4

REPORT INFORMATION
  Report Type: Spontaneous
  Country: JP (occurrence: JP)
  Receive Date: 20151007
  Receipt Date: 20161117
  Transmission Date: 20170206
  Serious: Yes (Hospitalization)
  Sender: FDA-Public Use
  Company Number: JP-ASTRAZENECA-2015SE53932

PATIENT
  Age: 44 Year
  Sex: Female

DRUGS (9)
  1. MEROPEN [Concomitant]
     Active Substance: MEROPENEM
     Dosage: DOSE UNKNOWN
     Route: 065
  2. NEXIUM [Suspect]
     Active Substance: ESOMEPRAZOLE MAGNESIUM
     Dosage: 20.0MG UNKNOWN
     Route: 048
     Dates: start: 201311
  3. XELODA [Suspect]
     Active Substance: CAPECITABINE
     Dosage: 3600 MG, DAILY NUMBER OF SEPARATE DOSAGES UNKNOWN
     Route: 048
     Dates: start: 20131102
  4. ZOSYN [Concomitant]
     Active Substance: PIPERACILLIN SODIUM\TAZOBACTAM SODIUM
     Dosage: DOSE UNKNOWN
     Route: 065
  5. FESIN [Concomitant]
     Active Substance: IRON SUCROSE
     Dosage: DOSE UNKNOWN
     Route: 065
  6. CEFMETAZOLE NA [Concomitant]
     Active Substance: CEFMETAZOLE
     Dosage: DOSE UNKNOWN
     Route: 065
  7. URSO [Concomitant]
     Active Substance: URSODIOL
     Route: 048
  8. GLYCYRON [Concomitant]
     Active Substance: AMMONIUM GLYCYRRHIZATE\GLYCINE\METHIONINE
     Dosage: 6 DF, DAILY. NUMBER OF SEPARATE DOSAGES UNKNOWN
     Route: 048
  9. TAKEPRON [Concomitant]
     Active Substance: LANSOPRAZOLE
     Dosage: DOSE UNKNOWN
     Route: 065

REACTIONS (2)
  - Eosinophilic cellulitis [Not Recovered/Not Resolved]
  - Photosensitivity reaction [Not Recovered/Not Resolved]

NARRATIVE: CASE EVENT DATE: 201404
